FAERS Safety Report 8817779 (Version 2)
Quarter: 2012Q4

REPORT INFORMATION
  Report Type: 
  Country: US (occurrence: US)
  Receive Date: 20121001
  Receipt Date: 20121011
  Transmission Date: 20130627
  Serious: Yes (Other)
  Sender: FDA-Public Use
  Company Number: PHEH2012US017470

PATIENT
  Age: 62 Year
  Sex: Female
  Weight: 64.4 kg

DRUGS (1)
  1. GILENYA [Suspect]
     Indication: MULTIPLE SCLEROSIS
     Dosage: 0.5 mg, QD
     Route: 048
     Dates: start: 20120905

REACTIONS (3)
  - Trigeminal neuralgia [Not Recovered/Not Resolved]
  - Multiple sclerosis relapse [Unknown]
  - Headache [Recovered/Resolved]
